FAERS Safety Report 21173046 (Version 2)
Quarter: 2022Q3

REPORT INFORMATION
  Report Type: Spontaneous
  Country: US (occurrence: US)
  Receive Date: 20220804
  Receipt Date: 20220906
  Transmission Date: 20221027
  Serious: No
  Sender: FDA-Public Use
  Company Number: US-PFIZER INC-202201026308

PATIENT
  Age: 83 Year
  Sex: Male
  Weight: 106.57 kg

DRUGS (1)
  1. PAXLOVID [Suspect]
     Active Substance: NIRMATRELVIR\RITONAVIR
     Indication: COVID-19 treatment
     Dosage: ONE PILL IN THE MORNING AND ONE PILL IN THE EVENING
     Route: 048
     Dates: start: 20220722, end: 20220725

REACTIONS (6)
  - Incorrect dose administered [Unknown]
  - Nausea [Unknown]
  - Pyrexia [Unknown]
  - Abdominal pain [Unknown]
  - Therapeutic product effect incomplete [Unknown]
  - Post-acute COVID-19 syndrome [Unknown]

NARRATIVE: CASE EVENT DATE: 20220101
